FAERS Safety Report 11239120 (Version 1)
Quarter: 2015Q3

REPORT INFORMATION
  Report Type: Spontaneous
  Country: US (occurrence: None)
  Receive Date: 20150701
  Receipt Date: 20150701
  Transmission Date: 20151125
  Serious: Yes (Death, Hospitalization)
  Sender: FDA-Public Use
  Company Number: CPI 6982

PATIENT
  Age: 22 Day
  Sex: Female
  Weight: 1.58 kg

DRUGS (10)
  1. VITAMIN E [Concomitant]
     Active Substance: .ALPHA.-TOCOPHEROL
  2. N-ACETYLCYSTEINE [Suspect]
     Active Substance: ACETYLCYSTEINE
  3. ALBUMIN [Concomitant]
     Active Substance: ALBUMIN (HUMAN)
  4. DEFEROXAMINE [Concomitant]
     Active Substance: DEFEROXAMINE\DEFEROXAMINE MESYLATE
  5. DOPAMINE [Concomitant]
     Active Substance: DOPAMINE\DOPAMINE HYDROCHLORIDE
  6. FLUCONAZOLE- UNKNOWN STRENGTH AND MFR [Suspect]
     Active Substance: FLUCONAZOLE
     Indication: CANDIDA INFECTION
     Route: 042
  7. FLUCONAZOLE- UNKNOWN STRENGTH AND MFR [Suspect]
     Active Substance: FLUCONAZOLE
     Indication: URINARY TRACT INFECTION
     Route: 042
  8. INTRAVENOUS IMMUNOGLOBULIN [Concomitant]
     Active Substance: HUMAN IMMUNOGLOBULIN G
  9. FUROSEMIDE. [Concomitant]
     Active Substance: FUROSEMIDE
  10. OXACILLIN [Concomitant]
     Active Substance: OXACILLIN SODIUM

REACTIONS (10)
  - Cardiac arrest [None]
  - Acute prerenal failure [None]
  - Multi-organ failure [None]
  - Haemochromatosis [None]
  - Candida infection [None]
  - Sepsis neonatal [None]
  - Acinetobacter test positive [None]
  - Toxic epidermal necrolysis [None]
  - Urinary tract infection fungal [None]
  - Mucous stools [None]

NARRATIVE: CASE EVENT DATE: 2013
